FAERS Safety Report 4338260-8 (Version None)
Quarter: 2004Q2

REPORT INFORMATION
  Report Type: 
  Country: None (occurrence: None)
  Receive Date: 20040413
  Receipt Date: 20040413
  Transmission Date: 20050107
  Serious: Yes (Other)
  Sender: FDA-Public Use
  Company Number: None

PATIENT
  Sex: Female
  Weight: 77.1115 kg

DRUGS (2)
  1. LUPRON DEPOT [Suspect]
     Indication: HAEMORRHAGE
     Dosage: 1 INJECTI IM
     Route: 030
     Dates: start: 20010824, end: 20010824
  2. LUPRON DEPOT [Suspect]
     Indication: UTERINE LEIOMYOMA
     Dosage: 1 INJECTI IM
     Route: 030
     Dates: start: 20010824, end: 20010824

REACTIONS (4)
  - AMNESIA [None]
  - ARTHRALGIA [None]
  - PERIPHERAL COLDNESS [None]
  - VISION BLURRED [None]
